FAERS Safety Report 15640658 (Version 1)
Quarter: 2018Q4

REPORT INFORMATION
  Report Type: Spontaneous
  Country: US (occurrence: US)
  Receive Date: 20181120
  Receipt Date: 20181120
  Transmission Date: 20190205
  Serious: Yes (Hospitalization, Other)
  Sender: FDA-Public Use
  Company Number: US-SA-2018SA314820

PATIENT
  Age: 70 Year
  Sex: Female

DRUGS (22)
  1. JAKAFI [Suspect]
     Active Substance: RUXOLITINIB
     Indication: MYELOFIBROSIS
     Dosage: 15 MG, BID
     Route: 065
     Dates: start: 20170414
  2. BENICAR [Concomitant]
     Active Substance: OLMESARTAN MEDOXOMIL
  3. JAKAFI [Suspect]
     Active Substance: RUXOLITINIB
     Indication: POLYCYTHAEMIA VERA
     Dosage: 15 MG, BID
     Route: 048
  4. ECOTRIN 650 [Concomitant]
  5. VALACICLOVIR HYDROCHLORIDE [Concomitant]
     Active Substance: VALACYCLOVIR HYDROCHLORIDE
  6. FLAGYL [Concomitant]
     Active Substance: METRONIDAZOLE\METRONIDAZOLE HYDROCHLORIDE
  7. PEPCID [FAMOTIDINE] [Concomitant]
     Dosage: UNK UNK, PRN
  8. JAKAFI [Suspect]
     Active Substance: RUXOLITINIB
     Dosage: 15 MG, BID
     Route: 048
  9. PROTONIX [OMEPRAZOLE] [Concomitant]
  10. VICODIN [Concomitant]
     Active Substance: ACETAMINOPHEN\HYDROCODONE BITARTRATE
  11. ERYTHROMYCIN. [Concomitant]
     Active Substance: ERYTHROMYCIN
  12. LASIX [FUROSEMIDE SODIUM] [Concomitant]
  13. HYDROCODONE [Concomitant]
     Active Substance: HYDROCODONE
  14. PANTOPRAZOLE [Concomitant]
     Active Substance: PANTOPRAZOLE
  15. METOPROLOL SUCCINATE. [Concomitant]
     Active Substance: METOPROLOL SUCCINATE
  16. XANAX [Concomitant]
     Active Substance: ALPRAZOLAM
  17. ASPIRIN (E.C.) [Concomitant]
     Active Substance: ASPIRIN
  18. FLONASE [Concomitant]
     Active Substance: FLUTICASONE PROPIONATE
  19. ASTELIN [AZELASTINE HYDROCHLORIDE] [Concomitant]
     Active Substance: AZELASTINE HYDROCHLORIDE
  20. LOVENOX [Suspect]
     Active Substance: ENOXAPARIN SODIUM
     Route: 065
  21. WARFARIN SODIUM. [Suspect]
     Active Substance: WARFARIN SODIUM
     Indication: PRODUCT USED FOR UNKNOWN INDICATION
     Route: 065
  22. FAMOTIDINE. [Suspect]
     Active Substance: FAMOTIDINE
     Indication: PRODUCT USED FOR UNKNOWN INDICATION
     Route: 065

REACTIONS (57)
  - Blood calcium increased [Unknown]
  - Skin discolouration [Unknown]
  - Haematocrit increased [Unknown]
  - Mesenteric venous occlusion [Unknown]
  - Abdominal discomfort [Unknown]
  - Blood cholesterol increased [Unknown]
  - Pneumonia [Unknown]
  - Pneumonia viral [Unknown]
  - Oral discomfort [Unknown]
  - Blood calcium decreased [Unknown]
  - Tremor [Unknown]
  - Mastication disorder [Unknown]
  - Platelet count decreased [Unknown]
  - International normalised ratio decreased [Unknown]
  - Irritable bowel syndrome [Unknown]
  - Burning sensation [Unknown]
  - Impaired healing [Unknown]
  - Hypophagia [Unknown]
  - Lung disorder [Unknown]
  - Endocrine disorder [Unknown]
  - Cholelithiasis [Unknown]
  - Red blood cell count decreased [Unknown]
  - Haematocrit decreased [Unknown]
  - Blood pressure increased [Unknown]
  - Speech disorder [Unknown]
  - Stomatitis [Unknown]
  - Peripheral swelling [Unknown]
  - Cough [Unknown]
  - Dysarthria [Unknown]
  - Haemorrhage [Unknown]
  - Paraesthesia [Unknown]
  - Weight decreased [Unknown]
  - Hepatic enzyme increased [Unknown]
  - Blood pressure fluctuation [Unknown]
  - Cheilitis [Unknown]
  - Parathyroid disorder [Unknown]
  - Tooth fracture [Unknown]
  - Abdominal pain [Unknown]
  - Diarrhoea [Unknown]
  - Increased tendency to bruise [Unknown]
  - Transient ischaemic attack [Unknown]
  - Secretion discharge [Unknown]
  - Multiple fractures [Unknown]
  - Stress fracture [Unknown]
  - Night sweats [Recovered/Resolved]
  - Depression [Unknown]
  - Tooth disorder [Unknown]
  - International normalised ratio abnormal [Unknown]
  - Contusion [Unknown]
  - Anaemia [Unknown]
  - Malaise [Unknown]
  - Blood lactate dehydrogenase increased [Unknown]
  - Pain in extremity [Unknown]
  - Cystitis [Unknown]
  - Fatigue [Unknown]
  - Arthralgia [Unknown]
  - Haemoglobin decreased [Unknown]
